FAERS Safety Report 7471911-8 (Version None)
Quarter: 2011Q2

REPORT INFORMATION
  Report Type: 
  Country: None (occurrence: None)
  Receive Date: 20110511
  Receipt Date: 20100712
  Transmission Date: 20111010
  Serious: No
  Sender: FDA-Public Use
  Company Number: A0869734A

PATIENT
  Age: 59 Year

DRUGS (2)
  1. FEMARA [Concomitant]
  2. TYKERB [Suspect]
     Indication: BREAST CANCER
     Dosage: 5TAB PER DAY
     Route: 048

REACTIONS (4)
  - NAUSEA [None]
  - VOMITING [None]
  - DYSPEPSIA [None]
  - RASH GENERALISED [None]
